FAERS Safety Report 9320939 (Version 1)
Quarter: 2013Q2

REPORT INFORMATION
  Report Type: Spontaneous
  Country: TR (occurrence: TR)
  Receive Date: 20130531
  Receipt Date: 20130531
  Transmission Date: 20140414
  Serious: Yes (Other)
  Sender: FDA-Public Use
  Company Number: PHHY2013TR053417

PATIENT
  Age: 72 Year
  Sex: Female

DRUGS (2)
  1. IMATINIB [Suspect]
     Indication: CHRONIC MYELOID LEUKAEMIA
     Dosage: 400 MG, DAILY
  2. IMATINIB [Suspect]
     Dosage: 600 MG, DAILY

REACTIONS (5)
  - Drug intolerance [Unknown]
  - Blast crisis in myelogenous leukaemia [Unknown]
  - Leukaemia recurrent [Not Recovered/Not Resolved]
  - Drug resistance [Unknown]
  - Chronic myeloid leukaemia [Unknown]
